FAERS Safety Report 16850296 (Version 3)
Quarter: 2019Q3

REPORT INFORMATION
  Report Type: Spontaneous
  Country: AU (occurrence: AU)
  Receive Date: 20190925
  Receipt Date: 20190925
  Transmission Date: 20191005
  Serious: Yes (Other)
  Sender: FDA-Public Use
  Company Number: AU-PFIZER INC-2019397339

PATIENT
  Age: 49 Year
  Sex: Male
  Weight: 72 kg

DRUGS (8)
  1. OXALIPLATIN. [Suspect]
     Active Substance: OXALIPLATIN
     Indication: COLORECTAL CANCER
     Dosage: 85 MG/M2, CYCLIC (INFUSION, FOLFOX CHEMOTHERAPY; DAY 1; FOUR TWO-WEEKLY CYCLES)
     Route: 042
  2. FLUOROURACIL. [Suspect]
     Active Substance: FLUOROURACIL
     Indication: COLORECTAL CANCER STAGE IV
     Dosage: 400 MG/M2, CYCLIC (FOLFIRI CHEMOTHERAPY)
     Route: 040
  3. CALCIUM FOLINATE [Suspect]
     Active Substance: LEUCOVORIN CALCIUM
     Indication: COLORECTAL CANCER STAGE IV
     Dosage: 50 MG, CYCLIC (DAY1 FOLFOX CHEMOTHERAPY; SEPARATED BY 14 REST DAYS; FOUR TWO-WEEKLY CYCLES)
     Route: 040
  4. IRINOTECAN HCL [Suspect]
     Active Substance: IRINOTECAN HYDROCHLORIDE
     Indication: COLORECTAL CANCER STAGE IV
     Dosage: 180 MG/M2, CYCLIC (OVER 90 MIN, FOLFIRI CHEMOTHERAPY)
     Route: 042
  5. CALCIUM FOLINATE [Suspect]
     Active Substance: LEUCOVORIN CALCIUM
     Dosage: 400 MG/M2, CYCLIC (FOLINIC ACID)
     Route: 042
  6. FLUOROURACIL. [Suspect]
     Active Substance: FLUOROURACIL
     Dosage: 2500 MG/M2, CYCLIC (INFUSION OVER 46 H, FOLFIRI CHEMOTHERAPY)
     Route: 042
  7. FLUOROURACIL. [Suspect]
     Active Substance: FLUOROURACIL
     Dosage: 2400 MG/M2, CYCLIC (CONTINUOUS IV VIA PUMP OVER 46 H, FOLFOX CHEMOTHERAPY; FOUR TWO-WEEKLY CYCLES)
     Route: 042
  8. FLUOROURACIL. [Suspect]
     Active Substance: FLUOROURACIL
     Dosage: 400 MG/M2, CYCLIC (FOLFOX CHEMOTHERAPY; DAY 1; SEPARATED BY 14 REST DAYS; FOUR TWO-WEEKLY CYCLES)
     Route: 042

REACTIONS (1)
  - Vascular pseudoaneurysm [Recovered/Resolved]
